FAERS Safety Report 22838059 (Version 10)
Quarter: 2023Q4

REPORT INFORMATION
  Report Type: Report from Study
  Country: NZ (occurrence: NZ)
  Receive Date: 20230818
  Receipt Date: 20231020
  Transmission Date: 20240110
  Serious: Yes (Death)
  Sender: FDA-Public Use
  Company Number: NZ-PFIZER INC-202300271094

PATIENT
  Age: 70 Year
  Sex: Male
  Weight: 63.8 kg

DRUGS (33)
  1. ELRANATAMAB [Suspect]
     Active Substance: ELRANATAMAB
     Indication: Plasma cell myeloma
     Dosage: 12 MG, WEEKLY
     Route: 058
     Dates: start: 20230313, end: 20230313
  2. ELRANATAMAB [Suspect]
     Active Substance: ELRANATAMAB
     Dosage: 32 MG, WEEKLY
     Route: 058
     Dates: start: 20230316, end: 20230316
  3. ELRANATAMAB [Suspect]
     Active Substance: ELRANATAMAB
     Dosage: 76 MG, WEEKLY
     Route: 058
     Dates: start: 20230330, end: 20230518
  4. DARATUMUMAB [Suspect]
     Active Substance: DARATUMUMAB
     Indication: Plasma cell myeloma
     Dosage: 1800 MG, WEEKLY
     Route: 058
     Dates: start: 20230330, end: 20230518
  5. CARBOHYDRATES\FATTY ACIDS\MINERALS\PROTEIN\VITAMINS [Concomitant]
     Active Substance: CARBOHYDRATES\FATTY ACIDS\MINERALS\PROTEIN\VITAMINS
     Indication: Weight decreased
     Dosage: 60 ML, 2X/DAY
     Route: 048
     Dates: start: 20230708, end: 20230801
  6. VITAMIN B COMPLEX [Concomitant]
     Active Substance: CYANOCOBALAMIN\DEXPANTHENOL\NIACINAMIDE\PYRIDOXINE HYDROCHLORIDE\RIBOFLAVIN 5^-PHOSPHATE SODIUM\THIA
     Indication: Refeeding syndrome
     Dosage: 2 TABLETS, 3X/DAY
     Route: 048
     Dates: start: 20230621, end: 20230801
  7. MAGNESIUM SULFATE [Concomitant]
     Active Substance: MAGNESIUM SULFATE\MAGNESIUM SULFATE HEPTAHYDRATE
     Indication: Hypomagnesaemia
     Dosage: 50 ML, ONCE
     Route: 042
     Dates: start: 20230724, end: 20230801
  8. DEXAMETHASONE [Concomitant]
     Active Substance: DEXAMETHASONE
     Indication: Pneumocystis jirovecii pneumonia
     Dosage: 6 MG, 1X/DAY
     Route: 048
     Dates: start: 20230722, end: 20230728
  9. DEXAMETHASONE [Concomitant]
     Active Substance: DEXAMETHASONE
     Indication: COVID-19 pneumonia
     Dosage: 4 MG, 1X/DAY
     Route: 048
     Dates: start: 20230729, end: 20230801
  10. COTRIMOXAZOLE [Concomitant]
     Active Substance: SULFAMETHOXAZOLE\TRIMETHOPRIM
     Indication: Antifungal prophylaxis
     Dosage: 960 MG, 1X/DAY
     Route: 048
     Dates: start: 20230724, end: 20230726
  11. POTASSIUM CHLORIDE [Concomitant]
     Active Substance: POTASSIUM CHLORIDE
     Indication: Hypokalaemia
     Dosage: 1200 MG, 3X/DAY
     Route: 048
     Dates: start: 20230724, end: 20230801
  12. PENTAMIDINE [Concomitant]
     Active Substance: PENTAMIDINE
     Indication: Antifungal prophylaxis
     Dosage: 192 MG, AS NEEDED
     Route: 042
     Dates: start: 20230727, end: 20230801
  13. PIPERACILLIN AND TAZOBACTAM [Concomitant]
     Active Substance: PIPERACILLIN SODIUM\TAZOBACTAM SODIUM
     Indication: Neutropenic sepsis
     Dosage: 4.5 G, 4X/DAY
     Route: 042
     Dates: start: 20230721, end: 20230801
  14. PLANTAGO AFRA SEED [Concomitant]
     Active Substance: PLANTAGO AFRA SEED
     Indication: Haemorrhoidal haemorrhage
     Dosage: 1 SCOOPFUL, 2X/DAY, POWDER
     Route: 048
     Dates: start: 20230721, end: 20230801
  15. PLANTAGO AFRA SEED [Concomitant]
     Active Substance: PLANTAGO AFRA SEED
     Indication: Constipation
  16. OMEPRAZOLE [Concomitant]
     Active Substance: OMEPRAZOLE
     Indication: Abdominal pain upper
     Dosage: 40 MG, 1X/DAY
     Route: 048
     Dates: start: 20230314, end: 20230801
  17. OMEPRAZOLE [Concomitant]
     Active Substance: OMEPRAZOLE
     Indication: Gastrooesophageal reflux prophylaxis
  18. ALBUMIN HUMAN [Concomitant]
     Active Substance: ALBUMIN HUMAN
     Indication: Hypoalbuminaemia
     Dosage: 500 ML, ONCE
     Route: 042
     Dates: start: 20230725, end: 20230801
  19. ACETAMINOPHEN [Concomitant]
     Active Substance: ACETAMINOPHEN
     Indication: Pain in extremity
     Dosage: 500 MG, ALTERNATE DAY
     Route: 048
     Dates: start: 20230314, end: 20230801
  20. ACETAMINOPHEN [Concomitant]
     Active Substance: ACETAMINOPHEN
     Indication: Cytokine release syndrome
  21. THIAMINE [Concomitant]
     Active Substance: THIAMINE
     Indication: Prophylaxis
     Dosage: 50 MG, 2X/DAY
     Route: 048
     Dates: start: 20230621, end: 20230801
  22. TAMSULOSIN [Concomitant]
     Active Substance: TAMSULOSIN
     Indication: Urine output decreased
     Dosage: 400 MCI, 1X/DAY
     Route: 048
     Dates: start: 20230623, end: 20230801
  23. VALACYCLOVIR HYDROCHLORIDE [Concomitant]
     Active Substance: VALACYCLOVIR HYDROCHLORIDE
     Indication: Antiviral prophylaxis
     Dosage: 500 MG, ONCE
     Route: 048
     Dates: start: 20230313, end: 20230801
  24. ENSURE [Concomitant]
     Active Substance: AMINO ACIDS\DEXTROSE\ELECTROLYTES NOS\SOYBEAN OIL\VITAMINS
     Indication: Decreased appetite
     Dosage: 53.5 G, 2X/DAY
     Route: 048
     Dates: start: 20230526, end: 20230801
  25. ENSURE [Concomitant]
     Active Substance: AMINO ACIDS\DEXTROSE\ELECTROLYTES NOS\SOYBEAN OIL\VITAMINS
     Indication: Weight decreased
  26. CALCIUM GLUCONATE [Concomitant]
     Active Substance: CALCIUM GLUCONATE
     Indication: Refeeding syndrome
     Dosage: 1 G, ONCE
     Route: 042
     Dates: start: 20230726, end: 20230801
  27. TEMAZEPAM [Concomitant]
     Active Substance: TEMAZEPAM
     Indication: Insomnia
     Dosage: 5 MG, 1X/DAY
     Route: 048
     Dates: start: 20230315, end: 20230801
  28. COTRIMOXAZOLE [Concomitant]
     Active Substance: SULFAMETHOXAZOLE\TRIMETHOPRIM
     Indication: Pneumocystis jirovecii infection
     Dosage: 960 MG, 4X/DAY
     Route: 048
     Dates: start: 20230701, end: 20230721
  29. PROCTOSEDYL [Concomitant]
     Active Substance: DIBUCAINE HYDROCHLORIDE\HYDROCORTISONE
     Indication: Haemorrhoids
     Dosage: UNK, AS NEEDED
     Route: 061
     Dates: start: 20230620, end: 20230801
  30. PROCTOSEDYL [Concomitant]
     Active Substance: DIBUCAINE HYDROCHLORIDE\HYDROCORTISONE
     Indication: Haemorrhoidal haemorrhage
  31. METOCLOPRAMIDE [Concomitant]
     Active Substance: METOCLOPRAMIDE
     Indication: Prophylaxis of nausea and vomiting
     Dosage: 10 MG, AS NEEDED
     Route: 048
     Dates: start: 20230216, end: 20230801
  32. ONDANSETRON [Concomitant]
     Active Substance: ONDANSETRON
     Indication: Prophylaxis of nausea and vomiting
     Dosage: 4 MG, AS NEEDED
     Route: 048
     Dates: start: 20230216, end: 20230801
  33. PABRINEX [ASCORBIC ACID;BENZYL ALCOHOL;NICOTINAMIDE;PYRIDOXINE HYDROCH [Concomitant]
     Indication: Refeeding syndrome
     Dosage: 10 ML, 1X/DAY
     Route: 042
     Dates: start: 20230726, end: 20230801

REACTIONS (1)
  - Cytomegalovirus infection [Fatal]

NARRATIVE: CASE EVENT DATE: 20230727
